FAERS Safety Report 9402114 (Version 1)
Quarter: 2013Q3

REPORT INFORMATION
  Report Type: Spontaneous
  Country: US (occurrence: US)
  Receive Date: 20130716
  Receipt Date: 20130716
  Transmission Date: 20140515
  Serious: No
  Sender: FDA-Public Use
  Company Number: US-GLAXOSMITHKLINE-A0981105A

PATIENT
  Age: 43 Year
  Sex: Female

DRUGS (3)
  1. NICORETTE MINIS MINT 2 MG [Suspect]
     Indication: EX-TOBACCO USER
  2. NICODERM CQ [Suspect]
     Indication: EX-TOBACCO USER
     Dates: start: 2002
  3. NICORETTE FRUIT CHILL OTC 4MG [Suspect]
     Indication: EX-TOBACCO USER

REACTIONS (5)
  - Abdominal discomfort [Recovered/Resolved]
  - Drug ineffective [Recovered/Resolved]
  - Application site erythema [Recovered/Resolved]
  - Application site irritation [Recovered/Resolved]
  - Application site pain [Recovered/Resolved]
